FAERS Safety Report 20727084 (Version 7)
Quarter: 2024Q4

REPORT INFORMATION
  Report Type: Report from Study
  Country: DE (occurrence: DE)
  Receive Date: 20220419
  Receipt Date: 20241004
  Transmission Date: 20250115
  Serious: Yes (Other)
  Sender: ROCHE
  Company Number: DE-ROCHE-2114420

PATIENT
  Age: 29 Year
  Sex: Female

DRUGS (5)
  1. OCREVUS [Suspect]
     Active Substance: OCRELIZUMAB
     Indication: Relapsing-remitting multiple sclerosis
     Route: 042
     Dates: start: 20180316
  2. OCREVUS [Suspect]
     Active Substance: OCRELIZUMAB
     Dosage: THIRD INFUSION.
     Route: 042
     Dates: start: 20180808
  3. OCREVUS [Suspect]
     Active Substance: OCRELIZUMAB
     Route: 042
     Dates: start: 20210315, end: 20210922
  4. COMIRNATY (TOZINAMERAN) [Suspect]
     Active Substance: TOZINAMERAN
     Indication: COVID-19 prophylaxis
     Dosage: FIRST DOSE. 09-JUN-2021?SECOND DOSE ON 30/JUN/2021
     Route: 065
  5. SPIKEVAX [Suspect]
     Active Substance: CX-046684
     Indication: Product used for unknown indication
     Dosage: 11-APR-2022 , 4 TH VACCINATION
     Route: 065

REACTIONS (28)
  - Sneezing [Recovered/Resolved]
  - Alopecia [Recovered/Resolved]
  - Hypotension [Recovered/Resolved]
  - Nasopharyngitis [Recovered/Resolved]
  - Dysaesthesia [Recovered/Resolved]
  - Nasopharyngitis [Recovered/Resolved]
  - B-lymphocyte count decreased [Recovered/Resolved]
  - Maternal exposure during pregnancy [Unknown]
  - Urinary tract infection [Recovered/Resolved]
  - Myalgia [Recovered/Resolved]
  - Fatigue [Recovered/Resolved]
  - Pain in extremity [Recovered/Resolved]
  - SARS-CoV-2 antibody test negative [Not Recovered/Not Resolved]
  - Chills [Recovered/Resolved]
  - Pyrexia [Recovered/Resolved]
  - Headache [Recovered/Resolved]
  - Blood potassium increased [Recovered/Resolved]
  - Maternal exposure during breast feeding [Unknown]
  - Herpes virus infection [Recovered/Resolved]
  - Rash [Recovered/Resolved]
  - Underdose [Unknown]
  - Middle ear inflammation [Recovered/Resolved]
  - COVID-19 [Recovered/Resolved]
  - Fatigue [Not Recovered/Not Resolved]
  - Respiratory tract infection [Recovered/Resolved]
  - Paraesthesia [Recovered/Resolved]
  - Pyrexia [Recovered/Resolved]
  - Pain in extremity [Recovered/Resolved]

NARRATIVE: CASE EVENT DATE: 20180316
